FAERS Safety Report 7404502-5 (Version None)
Quarter: 2011Q2

REPORT INFORMATION
  Report Type: 
  Country: None (occurrence: None)
  Receive Date: 20110408
  Receipt Date: 20110404
  Transmission Date: 20111010
  Serious: Yes (Other)
  Sender: FDA-Public Use
  Company Number: JP-PFIZER INC-2011029541

PATIENT
  Age: 42 Year
  Sex: Female
  Weight: 31 kg

DRUGS (102)
  1. LYRICA [Suspect]
     Indication: NEUROPATHY PERIPHERAL
     Dosage: 75 MG, 2X/DAY
     Route: 048
     Dates: start: 20110104, end: 20110121
  2. CRAVIT [Suspect]
     Dosage: 500 MG, 2X/DAY
     Route: 048
     Dates: start: 20110110, end: 20110112
  3. CRAVIT [Suspect]
     Dosage: 250 MG, 2X/DAY
     Route: 048
     Dates: start: 20110113, end: 20110114
  4. OXYCONTIN [Concomitant]
     Dosage: 10 MG, 2X/DAY
     Route: 048
     Dates: start: 20101231, end: 20110227
  5. MUCOSTA [Concomitant]
     Dosage: 100 MG, 2X/DAY
     Route: 048
     Dates: start: 20110115, end: 20110124
  6. GASMOTIN [Concomitant]
     Dosage: 10 MG, 3X/DAY
     Route: 048
     Dates: start: 20110111, end: 20110114
  7. LAFUTIDINE [Concomitant]
     Dosage: 10 MG, 1X/DAY
     Route: 048
     Dates: start: 20110104, end: 20110110
  8. LAFUTIDINE [Concomitant]
     Dosage: 20 MG, 1X/DAY
     Route: 048
     Dates: start: 20110115, end: 20110117
  9. QUAZEPAM [Concomitant]
     Indication: INSOMNIA
     Dosage: 15 MG, 1X/DAY
     Route: 048
     Dates: start: 20101217, end: 20101219
  10. CEFZON [Concomitant]
     Indication: URINARY TRACT INFECTION
     Dosage: 100 MG, 3X/DAY
     Route: 048
     Dates: start: 20101206, end: 20101219
  11. JUZENTAIHOTO [Concomitant]
     Dosage: 2 PACK, 2X/DAY
     Route: 048
     Dates: start: 20101206, end: 20101209
  12. DECADRON [Concomitant]
     Dosage: 3 MG, 1X/DAY
     Route: 048
     Dates: start: 20101213, end: 20101219
  13. FLUMARIN [Concomitant]
     Dosage: 1 G, 2X/DAY
     Route: 042
     Dates: start: 20110105, end: 20110106
  14. FLURBIPROFEN [Concomitant]
     Dosage: 50 MG, 1X/DAY
     Route: 042
     Dates: start: 20110111, end: 20110111
  15. FIRSTCIN [Concomitant]
     Indication: SEPSIS
     Dosage: 1 G, 2X/DAY
     Route: 042
     Dates: start: 20110115, end: 20110117
  16. FOROCYLE S [Concomitant]
     Dosage: 1 G, 1X/DAY
     Route: 042
     Dates: start: 20101224, end: 20101224
  17. CALONAL [Concomitant]
     Dosage: 200 MG, 4X/DAY
     Route: 048
     Dates: start: 20110119, end: 20110121
  18. CALONAL [Concomitant]
     Dosage: 200 MG, 2X/DAY
     Route: 048
     Dates: start: 20110122, end: 20110128
  19. FERROUS CITRATE [Concomitant]
     Indication: ANAEMIA
     Dosage: 50 MG, 1X/DAY
     Route: 048
     Dates: start: 20101206, end: 20101231
  20. FERROUS CITRATE [Concomitant]
     Dosage: 100 MG, 2X/DAY
     Route: 048
     Dates: start: 20110111, end: 20110114
  21. MUCOSTA [Concomitant]
     Dosage: 100 MG, 3X/DAY
     Route: 048
     Dates: start: 20101210, end: 20101219
  22. MUCOSTA [Concomitant]
     Dosage: 100 MG, 2X/DAY
     Route: 048
     Dates: start: 20110101, end: 20110110
  23. MOBIC [Concomitant]
     Dosage: 20 MG, 1X/DAY
     Route: 048
     Dates: start: 20110111, end: 20110114
  24. MINOMYCIN [Concomitant]
     Indication: SEPSIS
     Dosage: 100 MG, 2X/DAY
     Route: 048
     Dates: start: 20110114, end: 20110118
  25. ESTRADIOL [Concomitant]
     Indication: OESTROGEN REPLACEMENT THERAPY
     Dosage: 0.72 MG, ONCE EVERY 2DAYS
     Route: 062
     Dates: start: 20101206, end: 20101212
  26. NEUROTROPIN [Concomitant]
     Dosage: 2 DF, 2X/DAY
     Route: 048
     Dates: start: 20110109, end: 20110127
  27. FOSMICIN [Concomitant]
     Indication: URINARY TRACT INFECTION
     Dosage: 1000 MG, 3X/DAY
     Route: 048
     Dates: start: 20110103, end: 20110104
  28. DAI-KENCHU-TO [Concomitant]
     Indication: ABDOMINAL DISTENSION
     Dosage: 1 PACK, 2X/DAY
     Route: 048
     Dates: start: 20101206, end: 20101219
  29. JUZENTAIHOTO [Concomitant]
     Indication: ANAEMIA
     Dosage: 1 PACK, 2X/DAY
     Route: 048
     Dates: start: 20101201, end: 20101205
  30. LASIX [Concomitant]
     Indication: OEDEMA
     Dosage: 20 MG, 1X/DAY
     Route: 042
     Dates: start: 20101228, end: 20101228
  31. VANCOMYCIN [Concomitant]
     Dosage: 0.5 G, 1X/DAY
     Route: 042
     Dates: start: 20110122, end: 20110125
  32. FOROCYLE S [Concomitant]
     Indication: URINARY TRACT INFECTION
     Dosage: 1 G, 2X/DAY
     Route: 042
     Dates: start: 20101210, end: 20101223
  33. GASTER [Concomitant]
     Indication: GASTRIC ULCER
     Dosage: 20 ML, 1X/DAY
     Route: 042
     Dates: start: 20101210, end: 20110106
  34. CRAVIT [Suspect]
     Indication: SEPSIS
     Dosage: 250 MG, 2X/DAY
     Route: 048
     Dates: start: 20110106, end: 20110109
  35. FERROUS CITRATE [Concomitant]
     Dosage: 50 MG, 2X/DAY
     Route: 048
     Dates: start: 20110115, end: 20110124
  36. MUCOSTA [Concomitant]
     Dosage: 100 MG, 3X/DAY
     Route: 048
     Dates: start: 20101126, end: 20101205
  37. GASMOTIN [Concomitant]
     Indication: ABDOMINAL DISCOMFORT
     Dosage: 5 MG, 3X/DAY
     Route: 048
     Dates: start: 20110101, end: 20110110
  38. MOBIC [Concomitant]
     Dosage: 10 MG, 1X/DAY
     Route: 048
     Dates: start: 20110115, end: 20110124
  39. MYSLEE [Concomitant]
     Dosage: 20 MG, 1X/DAY
     Route: 048
     Dates: start: 20110111, end: 20110113
  40. NEUROTROPIN [Concomitant]
     Indication: BACK PAIN
     Dosage: 2 DF, 2X/DAY
     Route: 048
     Dates: start: 20101227, end: 20110101
  41. GABAPENTIN [Concomitant]
     Indication: NEUROPATHY PERIPHERAL
     Dosage: 200 MG, 1X/DAY
     Route: 048
     Dates: start: 20110102, end: 20110103
  42. VOLTAREN [Concomitant]
     Dosage: 50 MG, 1X/DAY
     Route: 054
     Dates: start: 20101225, end: 20101226
  43. QUAZEPAM [Concomitant]
     Dosage: 15 MG, 1X/DAY
     Route: 048
     Dates: start: 20101224, end: 20101231
  44. LOXONIN [Concomitant]
     Indication: BACK PAIN
     Dosage: 60 MG, 1X/DAY
     Route: 048
     Dates: start: 20101206, end: 20101215
  45. FLUMARIN [Concomitant]
     Dosage: 1 G, 1X/DAY
     Route: 042
     Dates: start: 20110130, end: 20110130
  46. FLURBIPROFEN [Concomitant]
     Dosage: 50 MG, 1X/DAY
     Route: 042
     Dates: start: 20110121, end: 20110122
  47. VANCOMYCIN [Concomitant]
     Indication: STAPHYLOCOCCAL INFECTION
     Dosage: 1 G, 2X/DAY
     Route: 042
     Dates: start: 20110121, end: 20110121
  48. OXYCONTIN [Concomitant]
     Indication: CANCER PAIN
     Dosage: 5 MG, 1X/DAY
     Route: 048
     Dates: start: 20101224, end: 20101224
  49. LAFUTIDINE [Concomitant]
     Dosage: 30 MG, 1X/DAY
     Route: 048
     Dates: start: 20110114, end: 20110114
  50. MYSLEE [Concomitant]
     Dosage: 10 MG, 1X/DAY
     Route: 048
     Dates: start: 20101221, end: 20101231
  51. MYSLEE [Concomitant]
     Dosage: 20 MG, 1X/DAY
     Route: 048
     Dates: start: 20110115, end: 20110117
  52. NEUROTROPIN [Concomitant]
     Dosage: 4 DF, 2X/DAY
     Route: 048
     Dates: start: 20110102, end: 20110108
  53. VOLTAREN [Concomitant]
     Indication: BACK PAIN
     Dosage: 50 MG, 2X/DAY
     Route: 054
     Dates: start: 20101224, end: 20101224
  54. INDISETRON [Concomitant]
     Indication: VOMITING
     Dosage: 8 MG, 1X/DAY
     Route: 048
     Dates: start: 20101230, end: 20110103
  55. FLUMARIN [Concomitant]
     Dosage: 1 G, 2X/DAY
     Route: 042
     Dates: start: 20110121, end: 20110129
  56. FLURBIPROFEN [Concomitant]
     Indication: SEPSIS
     Dosage: 50 MG, 1X/DAY
     Route: 042
     Dates: start: 20110104, end: 20110105
  57. THIAMINE HYDROCHLORIDE [Concomitant]
     Indication: VITAMIN SUPPLEMENTATION
     Dosage: 10 MG, 1X/DAY
     Route: 042
     Dates: start: 20101210, end: 20110106
  58. CALONAL [Concomitant]
     Indication: BACK PAIN
     Dosage: 200 MG, 2X/DAY
     Route: 048
     Dates: start: 20110112, end: 20110118
  59. LAFUTIDINE [Concomitant]
     Dosage: 20 MG, 1X/DAY
     Route: 048
     Dates: start: 20110111, end: 20110113
  60. METHYCOBAL [Concomitant]
     Indication: BACK PAIN
     Dosage: 500 MG, 3X/DAY
     Route: 048
     Dates: start: 20101213, end: 20110206
  61. MOBIC [Concomitant]
     Indication: BACK PAIN
     Dosage: 10 MG, 1X/DAY
     Route: 048
     Dates: start: 20110103, end: 20110110
  62. MYSLEE [Concomitant]
     Dosage: 10 MG, 1X/DAY
     Route: 048
     Dates: start: 20110104, end: 20110110
  63. DECADRON [Concomitant]
     Dosage: 3 MG, 1X/DAY
     Route: 048
     Dates: start: 20101201, end: 20101207
  64. FLURBIPROFEN [Concomitant]
     Dosage: 50 MG, 2X/DAY
     Route: 042
     Dates: start: 20110106, end: 20110106
  65. AMIKACIN [Concomitant]
     Indication: SEPSIS
     Dosage: 200 MG, 1X/DAY
     Route: 030
     Dates: start: 20110117, end: 20110120
  66. VANCOMYCIN [Concomitant]
     Dosage: 1 G, 2X/DAY
     Route: 042
     Dates: start: 20110126, end: 20110130
  67. TATHION [Concomitant]
     Dosage: 200 MG, 1X/DAY
     Route: 042
     Dates: start: 20101210, end: 20110106
  68. ASCORBIC ACID [Concomitant]
     Indication: VITAMIN SUPPLEMENTATION
     Dosage: 500 MG, 1X/DAY
     Route: 042
     Dates: start: 20101210, end: 20110106
  69. MEYLON [Concomitant]
     Indication: DIZZINESS
     Dosage: 20 ML, 1X/DAY
     Route: 042
     Dates: start: 20101210, end: 20110106
  70. MUCOSTA [Concomitant]
     Dosage: 200 MG, 3X/DAY
     Route: 048
     Dates: start: 20101206, end: 20101209
  71. MUCOSTA [Concomitant]
     Dosage: 100 MG, 3X/DAY
     Route: 048
     Dates: start: 20101221, end: 20101231
  72. LAFUTIDINE [Concomitant]
     Indication: GASTRIC ULCER
     Dosage: 20 MG, 1X/DAY
     Route: 048
     Dates: start: 20110101, end: 20110103
  73. MYSLEE [Concomitant]
     Indication: INSOMNIA
     Dosage: 10 MG, 1X/DAY
     Route: 048
     Dates: start: 20101206, end: 20101219
  74. MYSLEE [Concomitant]
     Dosage: 20 MG, 1X/DAY
     Route: 048
     Dates: start: 20110101, end: 20110103
  75. MYSLEE [Concomitant]
     Dosage: 30 MG, 1X/DAY
     Route: 048
     Dates: start: 20110114, end: 20110114
  76. QUAZEPAM [Concomitant]
     Dosage: 30 MG, 1X/DAY
     Route: 048
     Dates: start: 20101220, end: 20101223
  77. FLURBIPROFEN [Concomitant]
     Dosage: 50 MG, 1X/DAY
     Route: 042
     Dates: start: 20110108, end: 20110108
  78. FLAVITAN [Concomitant]
     Indication: VITAMIN SUPPLEMENTATION
     Dosage: 10 MG, 1X/DAY
     Route: 042
     Dates: start: 20101210, end: 20110106
  79. ITRIZOLE [Concomitant]
     Indication: SYSTEMIC MYCOSIS
     Dosage: 140 ML, 1X/DAY
     Route: 048
     Dates: start: 20110120, end: 20110126
  80. OXYCONTIN [Concomitant]
     Dosage: 5 MG, 2X/DAY
     Route: 048
     Dates: start: 20101225, end: 20101230
  81. MUCOSTA [Concomitant]
     Dosage: 100 MG, 3X/DAY
     Route: 048
     Dates: start: 20101123, end: 20101123
  82. MUCOSTA [Concomitant]
     Dosage: 200 MG, 2X/DAY
     Route: 048
     Dates: start: 20110111, end: 20110114
  83. VOLTAREN [Concomitant]
     Dosage: 50 MG, 2X/DAY
     Route: 054
     Dates: start: 20110107, end: 20110107
  84. ATARAX [Concomitant]
     Indication: ANXIOLYTIC THERAPY
     Dosage: UNK, 1X/DAY
     Route: 048
     Dates: start: 20101213, end: 20101226
  85. CEFZON [Concomitant]
     Dosage: 100 MG, 3X/DAY
     Route: 048
     Dates: start: 20101224, end: 20101230
  86. CEFZON [Concomitant]
     Dosage: 100 MG, 3X/DAY
     Route: 048
     Dates: start: 20110106, end: 20110107
  87. JUZENTAIHOTO [Concomitant]
     Dosage: 1 PACK, 2X/DAY
     Route: 048
     Dates: start: 20101210, end: 20101219
  88. DECADRON [Concomitant]
     Dosage: 1 MG, 1X/DAY
     Route: 048
     Dates: start: 20101220, end: 20110103
  89. FLUMARIN [Concomitant]
     Indication: SEPSIS
     Dosage: 1 G, 2X/DAY
     Route: 042
     Dates: start: 20101226, end: 20101231
  90. FLUMARIN [Concomitant]
     Indication: URINARY TRACT INFECTION
     Dosage: 1 G, 1X/DAY
     Route: 042
     Dates: start: 20110104, end: 20110104
  91. DEPAS [Suspect]
     Indication: BACK PAIN
     Dosage: 0.5 MG, 1X/DAY
     Route: 048
     Dates: start: 20110106, end: 20110119
  92. FERROUS CITRATE [Concomitant]
     Dosage: 50 MG, 2X/DAY
     Route: 048
     Dates: start: 20110101, end: 20110110
  93. MUCOSTA [Concomitant]
     Indication: GASTRIC ULCER
     Dosage: 100 MG, 3X/DAY
     Route: 048
     Dates: start: 20101116, end: 20101116
  94. MUCOSTA [Concomitant]
     Dosage: 200 MG, 3X/DAY
     Route: 048
     Dates: start: 20101117, end: 20101122
  95. GASMOTIN [Concomitant]
     Dosage: 5 MG, 3X/DAY
     Route: 048
     Dates: start: 20110115, end: 20110124
  96. LAFUTIDINE [Concomitant]
     Dosage: 10 MG, 1X/DAY
     Route: 048
     Dates: start: 20110118, end: 20110124
  97. MYSLEE [Concomitant]
     Dosage: 10 MG, 1X/DAY
     Route: 048
     Dates: start: 20110118, end: 20110124
  98. ESTRADIOL [Concomitant]
     Dosage: 0.72 MG, ONCE EVERY 2DAYS
     Route: 062
     Dates: start: 20101221, end: 20101227
  99. MAGNESIUM OXIDE [Concomitant]
     Indication: CONSTIPATION
     Dosage: 330 MG, 3X/DAY
     Route: 048
     Dates: start: 20101224, end: 20101231
  100. HACHIMIJIO-GAN [Concomitant]
     Indication: BACK PAIN
     Dosage: 1 PACK, 3X/DAY
     Route: 048
     Dates: start: 20101221, end: 20110103
  101. FLURBIPROFEN [Concomitant]
     Dosage: 50 MG, 1X/DAY
     Route: 042
     Dates: start: 20110115, end: 20110116
  102. MEROPEN [Concomitant]
     Indication: STAPHYLOCOCCAL INFECTION
     Dosage: 0.5 G, 2X/DAY
     Route: 042
     Dates: start: 20110118, end: 20110120

REACTIONS (3)
  - PYREXIA [None]
  - BLOOD CREATINE PHOSPHOKINASE INCREASED [None]
  - STAPHYLOCOCCAL INFECTION [None]
